FAERS Safety Report 14245267 (Version 1)
Quarter: 2017Q4

REPORT INFORMATION
  Report Type: Spontaneous
  Country: US (occurrence: US)
  Receive Date: 20171202
  Receipt Date: 20171202
  Transmission Date: 20180321
  Serious: No
  Sender: FDA-Public Use
  Company Number: US-ENDO PHARMACEUTICALS INC-2017-000614

PATIENT
  Sex: Male

DRUGS (2)
  1. XIAFLEX [Suspect]
     Active Substance: COLLAGENASE CLOSTRIDIUM HISTOLYTICUM
     Indication: PEYRONIE^S DISEASE
     Dosage: 1ST AND 2ND INJECTION OF FIRST CYCLE
     Route: 026
  2. XIAFLEX [Suspect]
     Active Substance: COLLAGENASE CLOSTRIDIUM HISTOLYTICUM
     Dosage: 1ST INJECTION OF 2ND CYCLE
     Route: 026

REACTIONS (6)
  - Penile blister [Recovered/Resolved]
  - Penile pain [Recovered/Resolved]
  - Wrong technique in product usage process [Recovered/Resolved]
  - Penile contusion [Not Recovered/Not Resolved]
  - Penile swelling [Recovered/Resolved]
  - Scar [Not Recovered/Not Resolved]
